FAERS Safety Report 4474433-1 (Version None)
Quarter: 2004Q4

REPORT INFORMATION
  Report Type: 
  Country: None (occurrence: None)
  Receive Date: 20041012
  Receipt Date: 20040930
  Transmission Date: 20050328
  Serious: Yes (Other)
  Sender: FDA-Public Use
  Company Number: 2004197800FR

PATIENT
  Age: 61 Year
  Sex: Female
  Weight: 70 kg

DRUGS (2)
  1. CELEBREX [Suspect]
     Indication: OSTEOARTHRITIS
     Dosage: 200 MG, QD, ORAL
     Route: 048
     Dates: end: 20040123
  2. BISOPROLOL FUMARATE [Concomitant]

REACTIONS (5)
  - DIZZINESS [None]
  - HYPERSENSITIVITY [None]
  - HYPERTENSIVE CRISIS [None]
  - MALAISE [None]
  - VOMITING [None]
